FAERS Safety Report 23992111 (Version 3)
Quarter: 2024Q3

REPORT INFORMATION
  Report Type: Spontaneous
  Country: DE (occurrence: DE)
  Receive Date: 20240620
  Receipt Date: 20240915
  Transmission Date: 20241016
  Serious: Yes (Hospitalization, Other)
  Sender: ROCHE
  Company Number: DE-002147023-NVSC2024DE122281

PATIENT
  Sex: Male

DRUGS (6)
  1. LUCENTIS [Suspect]
     Active Substance: RANIBIZUMAB
     Indication: Neovascular age-related macular degeneration
     Dosage: UNK (BOTH EYES)
     Route: 065
  2. DEXAMETHASONE\NEOMYCIN SULFATE\POLYMYXIN B SULFATE [Concomitant]
     Active Substance: DEXAMETHASONE\NEOMYCIN SULFATE\POLYMYXIN B SULFATE
     Indication: Prophylaxis
     Dosage: UNK, QID (RIGHT EYE)
     Route: 047
     Dates: start: 20230903, end: 202309
  3. DEXAMETHASONE\NEOMYCIN SULFATE\POLYMYXIN B SULFATE [Concomitant]
     Active Substance: DEXAMETHASONE\NEOMYCIN SULFATE\POLYMYXIN B SULFATE
     Dosage: UNK, TID (RIGHT EYE)
     Route: 047
     Dates: start: 202309, end: 202309
  4. DEXAMETHASONE\NEOMYCIN SULFATE\POLYMYXIN B SULFATE [Concomitant]
     Active Substance: DEXAMETHASONE\NEOMYCIN SULFATE\POLYMYXIN B SULFATE
     Dosage: UNK, BID (RIGHT EYE)
     Route: 047
     Dates: start: 202309, end: 202309
  5. NEVANAC [Concomitant]
     Active Substance: NEPAFENAC
     Indication: Prophylaxis
     Dosage: UNK, QD (RIGHT EYE, BEFORE GOING TO SLEEP)
     Route: 047
  6. DORZOLAMIDE HYDROCHLORIDE\TIMOLOL MALEATE [Concomitant]
     Active Substance: DORZOLAMIDE HYDROCHLORIDE\TIMOLOL MALEATE
     Indication: Product used for unknown indication
     Dosage: UNK, BID (LEFT AND RIGHT EYE)
     Route: 047

REACTIONS (4)
  - Cataract [Unknown]
  - Glaucoma [Unknown]
  - Pseudophakia [Unknown]
  - Disease progression [Unknown]
